FAERS Safety Report 5535272-3 (Version None)
Quarter: 2007Q4

REPORT INFORMATION
  Report Type: 
  Country: None (occurrence: None)
  Receive Date: 20071204
  Receipt Date: 20071204
  Transmission Date: 20080405
  Serious: Yes (Other)
  Sender: FDA-Public Use
  Company Number: None

PATIENT
  Sex: Female
  Weight: 61.2356 kg

DRUGS (3)
  1. CYMBALTA [Suspect]
     Indication: DEPRESSION
     Dosage: 60MG QD PO
     Route: 048
     Dates: start: 20070301, end: 20071015
  2. CYMBALTA [Suspect]
     Indication: NEURALGIA
     Dosage: 60MG QD PO
     Route: 048
     Dates: start: 20070301, end: 20071015
  3. CYMBALTA [Suspect]
     Dosage: 30MG QD PO
     Route: 048
     Dates: start: 20071016, end: 20071128

REACTIONS (6)
  - BALANCE DISORDER [None]
  - DISTURBANCE IN ATTENTION [None]
  - DRUG WITHDRAWAL SYNDROME [None]
  - HEADACHE [None]
  - NAUSEA [None]
  - NERVOUS SYSTEM DISORDER [None]
